FAERS Safety Report 17004093 (Version 1)
Quarter: 2019Q4

REPORT INFORMATION
  Report Type: Spontaneous
  Country: BE (occurrence: BE)
  Receive Date: 20191107
  Receipt Date: 20191107
  Transmission Date: 20200122
  Serious: Yes (Death, Disabling)
  Sender: FDA-Public Use
  Company Number: BE-SA-2019SA306854

PATIENT
  Sex: Female

DRUGS (1)
  1. MYOZYME [Suspect]
     Active Substance: ALGLUCOSIDASE ALFA
     Indication: GLYCOGEN STORAGE DISEASE TYPE II
     Dosage: UNK

REACTIONS (6)
  - Therapy cessation [Unknown]
  - Bedridden [Unknown]
  - Dysphagia [Unknown]
  - Pain [Unknown]
  - Euthanasia [Fatal]
  - Aphasia [Unknown]

NARRATIVE: CASE EVENT DATE: 201910
